FAERS Safety Report 24640250 (Version 1)
Quarter: 2024Q4

REPORT INFORMATION
  Report Type: Spontaneous
  Country: AR (occurrence: AR)
  Receive Date: 20241120
  Receipt Date: 20241120
  Transmission Date: 20250114
  Serious: Yes (Other)
  Sender: AMGEN
  Company Number: AR-AMGEN-ARGSP2024225103

PATIENT
  Age: 34 Year
  Sex: Female

DRUGS (3)
  1. NPLATE [Suspect]
     Active Substance: ROMIPLOSTIM
     Indication: Immune thrombocytopenia
     Dosage: 1 MICROGRAM/KILOGRAM
     Route: 065
     Dates: start: 2019
  2. NPLATE [Suspect]
     Active Substance: ROMIPLOSTIM
     Dosage: 10 MICROGRAM/KILOGRAM
     Route: 065
     Dates: end: 202306
  3. ELTROMBOPAG [Concomitant]
     Active Substance: ELTROMBOPAG
     Dosage: UNK
     Route: 065

REACTIONS (3)
  - Splenectomy [Unknown]
  - Headache [Unknown]
  - Haemorrhage [Unknown]
